FAERS Safety Report 5359953-X (Version None)
Quarter: 2007Q2

REPORT INFORMATION
  Report Type: 
  Country: None (occurrence: None)
  Receive Date: 20070530
  Receipt Date: 20070201
  Transmission Date: 20071010
  Serious: No
  Sender: FDA-Public Use
  Company Number: 2007PV029442

PATIENT
  Age: 64 Year
  Sex: Female
  Weight: 86.1834 kg

DRUGS (2)
  1. BYETTA [Suspect]
     Indication: GLUCOSE TOLERANCE IMPAIRED
     Dosage: 10;5 MCG;BID;SC
     Dates: start: 20061101, end: 20061201
  2. BYETTA [Suspect]
     Indication: GLUCOSE TOLERANCE IMPAIRED
     Dosage: 10;5 MCG;BID;SC
     Dates: start: 20061201

REACTIONS (4)
  - ABDOMINAL DISTENSION [None]
  - HUNGER [None]
  - INJECTION SITE EXTRAVASATION [None]
  - INJECTION SITE URTICARIA [None]
